FAERS Safety Report 12718937 (Version 1)
Quarter: 2016Q3

REPORT INFORMATION
  Report Type: Spontaneous
  Country: US (occurrence: US)
  Receive Date: 20160906
  Receipt Date: 20160906
  Transmission Date: 20161109
  Serious: No
  Sender: FDA-Public Use
  Company Number: US-ASTRAZENECA-2016SE58596

PATIENT
  Sex: Female
  Weight: 79.4 kg

DRUGS (6)
  1. LEVOTHYROXINE. [Concomitant]
     Active Substance: LEVOTHYROXINE
     Indication: HYPOTHYROIDISM
     Dates: start: 2015
  2. ATORVASTATIN [Concomitant]
     Active Substance: ATORVASTATIN
     Indication: DIABETES MELLITUS
     Dates: start: 2012
  3. FAMOTIDINE. [Concomitant]
     Active Substance: FAMOTIDINE
     Indication: MYOCARDIAL INFARCTION
     Dates: start: 20160428
  4. BRILINTA [Suspect]
     Active Substance: TICAGRELOR
     Indication: MYOCARDIAL INFARCTION
     Route: 048
     Dates: start: 20160428
  5. LISINOPRIL. [Suspect]
     Active Substance: LISINOPRIL
     Indication: DIABETES MELLITUS
     Dosage: UNKNOWN
     Route: 048
     Dates: start: 2012
  6. ASPIRIN. [Concomitant]
     Active Substance: ASPIRIN
     Indication: MYOCARDIAL INFARCTION
     Route: 048
     Dates: start: 20160428

REACTIONS (6)
  - Mass [Unknown]
  - Contusion [Not Recovered/Not Resolved]
  - Product use issue [Unknown]
  - Pain [Unknown]
  - Abdominal discomfort [Unknown]
  - Off label use [Unknown]
